FAERS Safety Report 7939400-1 (Version None)
Quarter: 2011Q4

REPORT INFORMATION
  Report Type: 
  Country: None (occurrence: None)
  Receive Date: 20111125
  Receipt Date: 20111116
  Transmission Date: 20120403
  Serious: Yes (Other)
  Sender: FDA-Public Use
  Company Number: US-BAYER-2011-111092

PATIENT
  Age: 17 Year
  Sex: Female

DRUGS (1)
  1. YASMIN [Suspect]
     Dosage: UNK
     Dates: start: 20030301, end: 20050101

REACTIONS (4)
  - INJURY [None]
  - PAIN [None]
  - CHOLECYSTECTOMY [None]
  - NAUSEA [None]
